FAERS Safety Report 8281783-X (Version None)
Quarter: 2012Q2

REPORT INFORMATION
  Report Type: 
  Country: None (occurrence: None)
  Receive Date: 20120413
  Receipt Date: 20120410
  Transmission Date: 20120825
  Serious: Yes (Death)
  Sender: FDA-Public Use
  Company Number: US-JNJFOC-20120405198

PATIENT

DRUGS (21)
  1. DOXORUBICIN HCL [Suspect]
     Indication: MALIGNANT FIBROUS HISTIOCYTOMA
     Route: 042
  2. CARBOPLATIN [Suspect]
     Indication: MALIGNANT FIBROUS HISTIOCYTOMA
     Route: 042
  3. IFOSFAMIDE [Suspect]
     Indication: BONE SARCOMA
     Route: 042
  4. IFOSFAMIDE [Suspect]
     Indication: MALIGNANT FIBROUS HISTIOCYTOMA
     Route: 042
  5. NEUPOGEN [Concomitant]
     Route: 065
  6. DOXORUBICIN HCL [Suspect]
     Route: 042
  7. DOXORUBICIN HCL [Suspect]
     Indication: BONE SARCOMA
     Route: 042
  8. DOXORUBICIN HCL [Suspect]
     Route: 042
  9. DOXORUBICIN HCL [Suspect]
     Route: 042
  10. CARBOPLATIN [Suspect]
     Indication: BONE SARCOMA
     Route: 042
  11. CARBOPLATIN [Suspect]
     Route: 042
  12. DOXORUBICIN HCL [Suspect]
     Route: 042
  13. CARBOPLATIN [Suspect]
     Route: 042
  14. IFOSFAMIDE [Suspect]
     Route: 042
  15. IFOSFAMIDE [Suspect]
     Route: 042
  16. IFOSFAMIDE [Suspect]
     Route: 042
  17. NEUPOGEN [Concomitant]
     Route: 065
  18. CARBOPLATIN [Suspect]
     Route: 042
  19. IFOSFAMIDE [Suspect]
     Route: 042
  20. NEUPOGEN [Concomitant]
     Route: 065
  21. CARBOPLATIN [Suspect]
     Route: 042

REACTIONS (1)
  - BACTERIAL SEPSIS [None]
